FAERS Safety Report 15966660 (Version 1)
Quarter: 2019Q1

REPORT INFORMATION
  Report Type: Spontaneous
  Country: US (occurrence: US)
  Receive Date: 20190215
  Receipt Date: 20190215
  Transmission Date: 20190418
  Serious: No
  Sender: FDA-Public Use
  Company Number: US-009507513-1902USA004201

PATIENT
  Sex: Female

DRUGS (5)
  1. TEMPRA [Concomitant]
     Active Substance: ACETAMINOPHEN
  2. BELSOMRA [Suspect]
     Active Substance: SUVOREXANT
     Dosage: 3/4 OF A 20 MG TABLET
     Route: 048
     Dates: start: 201811
  3. BELSOMRA [Suspect]
     Active Substance: SUVOREXANT
     Indication: INSOMNIA
     Dosage: 20 MILLIGRAM, 1 TABLET
     Route: 048
     Dates: start: 201807
  4. BELSOMRA [Suspect]
     Active Substance: SUVOREXANT
     Dosage: 1/2 OF A 20 MG TABLET
     Route: 048
     Dates: end: 201809
  5. CLONAZEPAM. [Concomitant]
     Active Substance: CLONAZEPAM

REACTIONS (4)
  - Wrong technique in product usage process [Unknown]
  - Fatigue [Recovered/Resolved]
  - Drug ineffective [Recovered/Resolved]
  - Nightmare [Recovered/Resolved]

NARRATIVE: CASE EVENT DATE: 2018
